FAERS Safety Report 19046962 (Version 5)
Quarter: 2021Q4

REPORT INFORMATION
  Report Type: Report from Study
  Country: US (occurrence: US)
  Receive Date: 20210323
  Receipt Date: 20211104
  Transmission Date: 20220303
  Serious: No
  Sender: FDA-Public Use
  Company Number: NVSC2021US066662

PATIENT
  Sex: Female

DRUGS (5)
  1. ENTRESTO [Suspect]
     Active Substance: SACUBITRIL\VALSARTAN
     Indication: Cardiac failure
     Dosage: 1 DF, (97/103 MG), BID
     Route: 048
     Dates: start: 20210116
  2. ENTRESTO [Suspect]
     Active Substance: SACUBITRIL\VALSARTAN
     Dosage: 1 DF, (X2 PILLS AT NIGHT, SO X1 AM AND X2 PM (24/26 MG).)
     Route: 065
  3. JARDIANCE [Concomitant]
     Active Substance: EMPAGLIFLOZIN
     Indication: Cardiac failure
     Dosage: UNK (DISCONTINUED 3 WKS AGO, STOP DATE: APPROX 14 APRIL 2021)
     Route: 065
  4. LASIX [Concomitant]
     Active Substance: FUROSEMIDE
     Indication: Fluid retention
     Dosage: UNK (START DATE: APPORX 14 APRIL 2021)
     Route: 065
     Dates: end: 202106
  5. LASIX [Concomitant]
     Active Substance: FUROSEMIDE
     Route: 065
     Dates: start: 202106

REACTIONS (6)
  - Vaginal infection [Unknown]
  - Dyspnoea [Unknown]
  - Chest pain [Unknown]
  - Echocardiogram abnormal [Unknown]
  - Fatigue [Unknown]
  - Product prescribing issue [Unknown]
